FAERS Safety Report 15963838 (Version 1)
Quarter: 2019Q1

REPORT INFORMATION
  Report Type: Report from Study
  Country: US (occurrence: US)
  Receive Date: 20190214
  Receipt Date: 20190214
  Transmission Date: 20190417
  Serious: Yes (Death, Hospitalization)
  Sender: FDA-Public Use
  Company Number: US-ACTELION-A-NJ2018-172162

PATIENT
  Age: 82 Year
  Sex: Female
  Weight: 74.83 kg

DRUGS (5)
  1. OPSUMIT [Suspect]
     Active Substance: MACITENTAN
     Indication: PULMONARY ARTERIAL HYPERTENSION
     Dosage: 10 MG, QD
     Route: 048
     Dates: start: 20180501
  2. ADVAIR HFA [Concomitant]
     Active Substance: FLUTICASONE PROPIONATE\SALMETEROL XINAFOATE
  3. SIMVASTATIN. [Concomitant]
     Active Substance: SIMVASTATIN
     Dosage: UNK
  4. ACETAMINOPHEN. [Concomitant]
     Active Substance: ACETAMINOPHEN
  5. BUMETANIDE. [Concomitant]
     Active Substance: BUMETANIDE

REACTIONS (24)
  - Back pain [Unknown]
  - Nasal congestion [Not Recovered/Not Resolved]
  - Pleural effusion [Unknown]
  - Pain [Unknown]
  - Chills [Recovered/Resolved]
  - Dyspnoea exertional [Not Recovered/Not Resolved]
  - Abdominal discomfort [Unknown]
  - Dyspnoea [Not Recovered/Not Resolved]
  - Heart rate increased [Unknown]
  - Rheumatoid arthritis [Unknown]
  - Syncope [Unknown]
  - Death [Fatal]
  - Abnormal loss of weight [Unknown]
  - Decreased appetite [Unknown]
  - Oropharyngeal pain [Recovered/Resolved]
  - Dizziness [Unknown]
  - Asthenia [Unknown]
  - Fatigue [Unknown]
  - Hypotension [Unknown]
  - Neck pain [Unknown]
  - Arthralgia [Unknown]
  - Tonsillitis [Recovered/Resolved]
  - Nasopharyngitis [Not Recovered/Not Resolved]
  - Feeling cold [Recovered/Resolved]

NARRATIVE: CASE EVENT DATE: 2018
